FAERS Safety Report 7700525-7 (Version None)
Quarter: 2011Q3

REPORT INFORMATION
  Report Type: 
  Country: None (occurrence: None)
  Receive Date: 20110822
  Receipt Date: 20110819
  Transmission Date: 20111222
  Serious: Yes (Death)
  Sender: FDA-Public Use
  Company Number: JP-B.I. PHARMACEUTICALS,INC./RIDGEFIELD-2011-BP-20381NB

PATIENT
  Age: 87 Year
  Sex: Male

DRUGS (6)
  1. PRADAXA [Suspect]
     Indication: ATRIAL FIBRILLATION
     Dosage: 220 MG
     Route: 048
     Dates: start: 20110518, end: 20110711
  2. ASPIRIN [Suspect]
     Dosage: 100 MG
     Route: 048
     Dates: end: 20110711
  3. ALLOPURINOL [Concomitant]
     Indication: HYPERURICAEMIA
     Dosage: 200 MG
     Route: 048
     Dates: end: 20110711
  4. HARNAL D [Concomitant]
     Indication: BENIGN PROSTATIC HYPERPLASIA
     Dosage: 0.2 MG
     Route: 048
     Dates: end: 20110711
  5. ISOSORBIDE DINITRATE [Concomitant]
     Dosage: 60 MG
     Route: 048
     Dates: end: 20110711
  6. AMLODIN OD [Concomitant]
     Dosage: 5 MG
     Route: 048
     Dates: end: 20110711

REACTIONS (2)
  - ANAEMIA [None]
  - HAEMORRHAGE [None]
